FAERS Safety Report 4896177-4 (Version None)
Quarter: 2006Q1

REPORT INFORMATION
  Report Type: 
  Country: None (occurrence: None)
  Receive Date: 20060126
  Receipt Date: 20060117
  Transmission Date: 20060701
  Serious: Yes (Other)
  Sender: FDA-Public Use
  Company Number: 2006009674

PATIENT
  Age: 72 Year
  Sex: Male
  Weight: 88.4514 kg

DRUGS (11)
  1. LYRICA [Suspect]
     Indication: NEUROPATHY
     Dosage: 450 MG (150 MG, 3 IN 1 D), ORAL
     Route: 048
     Dates: start: 20051108
  2. METOPROLOL (METOPROLOL) [Concomitant]
  3. COLACE (DOCUSATE SODIUM) [Concomitant]
  4. COLCHICUM JTL LIQ [Concomitant]
  5. AVANDIA [Concomitant]
  6. HYDROCODONE BITARTRATE [Concomitant]
  7. AMBIEN [Concomitant]
  8. ASPIRIN [Concomitant]
  9. CRESTOR [Concomitant]
  10. PLAVIX [Concomitant]
  11. GLUCOVANCE [Concomitant]

REACTIONS (2)
  - INTERVERTEBRAL DISC PROTRUSION [None]
  - PRURITUS [None]
